FAERS Safety Report 6195923-X (Version None)
Quarter: 2009Q2

REPORT INFORMATION
  Report Type: 
  Country: None (occurrence: None)
  Receive Date: 20090520
  Receipt Date: 20090514
  Transmission Date: 20091009
  Serious: Yes (Other)
  Sender: FDA-Public Use
  Company Number: US-AVENTIS-200914207US

PATIENT
  Sex: Female
  Weight: 104.8 kg

DRUGS (10)
  1. LOVENOX [Suspect]
     Dates: start: 20040101, end: 20081101
  2. LOVENOX [Suspect]
     Dates: start: 20081101
  3. LOVENOX [Suspect]
     Dates: start: 20040101, end: 20081101
  4. LOVENOX [Suspect]
     Dates: start: 20081101
  5. TOPAMAX [Concomitant]
     Indication: HEADACHE
     Dosage: DOSE: 25MG AM, 50MG PM
  6. PROPRANOLOL ER [Concomitant]
     Indication: BLOOD PRESSURE
  7. GABAPENTIN [Concomitant]
  8. CELEBREX [Concomitant]
     Indication: ARTHRITIS
  9. PLAVIX [Concomitant]
     Dates: start: 20040101
  10. LOVAZA [Concomitant]
     Dosage: DOSE: 6 CAPSULES

REACTIONS (6)
  - BLOOD CREATININE INCREASED [None]
  - BLOOD UREA INCREASED [None]
  - DRUG INEFFECTIVE [None]
  - PULMONARY EMBOLISM [None]
  - RENAL FAILURE [None]
  - URINE OUTPUT DECREASED [None]
